FAERS Safety Report 5942707-0 (Version None)
Quarter: 2008Q4

REPORT INFORMATION
  Report Type: 
  Country: None (occurrence: None)
  Receive Date: 20081106
  Receipt Date: 20081024
  Transmission Date: 20090506
  Serious: Yes (Death, Other)
  Sender: FDA-Public Use
  Company Number: US-BAYER-200830585NA

PATIENT
  Age: 65 Year
  Sex: Male

DRUGS (3)
  1. BETASERON [Suspect]
     Indication: MULTIPLE SCLEROSIS
     Dosage: TOTAL DAILY DOSE: 8 MIU
     Route: 058
     Dates: start: 20020508, end: 20051219
  2. HERBAL SUPPLEMENTS [Concomitant]
  3. VITAMIN TAB [Concomitant]

REACTIONS (5)
  - COMPLETED SUICIDE [None]
  - DEPRESSION [None]
  - HYPOTENSION [None]
  - MYOCARDIAL INFARCTION [None]
  - SUICIDAL IDEATION [None]
